FAERS Safety Report 24895033 (Version 1)
Quarter: 2025Q1

REPORT INFORMATION
  Report Type: Spontaneous
  Country: FR (occurrence: FR)
  Receive Date: 20250128
  Receipt Date: 20250128
  Transmission Date: 20250408
  Serious: Yes (Other)
  Sender: UCB
  Company Number: FR-UCBSA-2025004270

PATIENT
  Sex: Male

DRUGS (2)
  1. KEPPRA [Suspect]
     Active Substance: LEVETIRACETAM
     Indication: Epilepsy
     Dosage: 1000 MILLIGRAM, 2X/DAY (BID) (1000 MG IN THE MORNING AND 1000 MG IN THE EVENING)
     Dates: start: 20240809
  2. TEMODAL [Concomitant]
     Active Substance: TEMOZOLOMIDE
     Indication: Chemotherapy
     Dates: start: 202411

REACTIONS (2)
  - Acute kidney injury [Not Recovered/Not Resolved]
  - Brain tumour operation [Not Recovered/Not Resolved]

NARRATIVE: CASE EVENT DATE: 20240801
